FAERS Safety Report 7681333-2 (Version None)
Quarter: 2011Q3

REPORT INFORMATION
  Report Type: 
  Country: None (occurrence: None)
  Receive Date: 20110812
  Receipt Date: 20110802
  Transmission Date: 20111222
  Serious: Yes (Other)
  Sender: FDA-Public Use
  Company Number: CA-JNJFOC-20110803362

PATIENT
  Sex: Female
  Weight: 71.2 kg

DRUGS (4)
  1. ELAVIL [Concomitant]
     Route: 065
  2. REMICADE [Suspect]
     Indication: RHEUMATOID ARTHRITIS
     Route: 042
     Dates: start: 20090101
  3. METHOTREXATE [Concomitant]
     Route: 065
  4. ALL OTHER THERAPEUTICS [Concomitant]
     Route: 065

REACTIONS (3)
  - FRACTURE [None]
  - FALL [None]
  - LACERATION [None]
